FAERS Safety Report 8159473-3 (Version None)
Quarter: 2012Q1

REPORT INFORMATION
  Report Type: 
  Country: None (occurrence: None)
  Receive Date: 20120223
  Receipt Date: 20120217
  Transmission Date: 20120608
  Serious: Yes (Death)
  Sender: FDA-Public Use
  Company Number: US-BAXTER-2012BH004702

PATIENT
  Sex: Male

DRUGS (4)
  1. FEIBA [Suspect]
     Indication: ACQUIRED HAEMOPHILIA WITH ANTI FVIII, XI, OR XIII
     Route: 042
     Dates: start: 20110101, end: 20110101
  2. NOVOSEVEN [Suspect]
     Indication: WOUND HAEMORRHAGE
     Route: 065
     Dates: start: 20110101, end: 20110101
  3. NOVOSEVEN [Suspect]
     Indication: ACQUIRED HAEMOPHILIA
     Route: 065
     Dates: start: 20110101, end: 20110101
  4. FEIBA [Suspect]
     Indication: WOUND HAEMORRHAGE
     Route: 042
     Dates: start: 20110101, end: 20110101

REACTIONS (1)
  - MYOCARDIAL INFARCTION [None]
